FAERS Safety Report 7003217-5 (Version None)
Quarter: 2010Q3

REPORT INFORMATION
  Report Type: 
  Country: None (occurrence: None)
  Receive Date: 20100916
  Receipt Date: 20100907
  Transmission Date: 20110219
  Serious: Yes (Disabling)
  Sender: FDA-Public Use
  Company Number: 2010US003585

PATIENT
  Age: 47 Year
  Sex: Male

DRUGS (1)
  1. PROGRAF [Suspect]
     Indication: RENAL TRANSPLANT
     Dosage: 8 MG, BID; 2.5 MG AM, 2 MG PM, UID/QD

REACTIONS (1)
  - POST TRANSPLANT DISTAL LIMB SYNDROME [None]
